FAERS Safety Report 22595586 (Version 1)
Quarter: 2023Q2

REPORT INFORMATION
  Report Type: Report from Study
  Country: ES (occurrence: ES)
  Receive Date: 20230613
  Receipt Date: 20230613
  Transmission Date: 20230721
  Serious: Yes (Other)
  Sender: FDA-Public Use
  Company Number: ES-SAMSUNG BIOEPIS-SB-2023-07007

PATIENT
  Age: 43 Year
  Sex: Male

DRUGS (2)
  1. ETANERCEPT [Suspect]
     Active Substance: ETANERCEPT
     Indication: Rheumatoid arthritis
     Dosage: 50 (UNITS UNKNOWN)
     Route: 058
     Dates: start: 20170704, end: 20230515
  2. METHOTREXATE SODIUM [Concomitant]
     Active Substance: METHOTREXATE SODIUM
     Indication: Product used for unknown indication
     Dosage: 15 DOSE (UNSPECIFIED UNIT), VIA PARENTHERAL
     Route: 065

REACTIONS (3)
  - Cellulitis [Recovered/Resolved]
  - Immunodeficiency [Unknown]
  - Drug ineffective [Unknown]

NARRATIVE: CASE EVENT DATE: 20221027
